FAERS Safety Report 16144614 (Version 2)
Quarter: 2019Q2

REPORT INFORMATION
  Report Type: Spontaneous
  Country: US (occurrence: US)
  Receive Date: 20190402
  Receipt Date: 20190430
  Transmission Date: 20190711
  Serious: No
  Sender: FDA-Public Use
  Company Number: US-009507513-1903USA012810

PATIENT
  Age: 20 Year
  Sex: Female
  Weight: 146.51 kg

DRUGS (1)
  1. NEXPLANON [Suspect]
     Active Substance: ETONOGESTREL
     Indication: CONTRACEPTION
     Dosage: 1 IMPLANT
     Route: 059
     Dates: start: 20171103, end: 20190222

REACTIONS (5)
  - Complication of device removal [Recovered/Resolved]
  - Complication associated with device [Recovered/Resolved]
  - Device breakage [Recovered/Resolved]
  - Limb discomfort [Recovered/Resolved]
  - Implant site fibrosis [Recovered/Resolved]

NARRATIVE: CASE EVENT DATE: 201811
